FAERS Safety Report 12448858 (Version 1)
Quarter: 2016Q2

REPORT INFORMATION
  Report Type: Report from Study
  Country: BR (occurrence: BR)
  Receive Date: 20160608
  Receipt Date: 20160608
  Transmission Date: 20160815
  Serious: Yes (Disabling, Other)
  Sender: FDA-Public Use
  Company Number: PHHY2016BR061263

PATIENT
  Age: 89 Year
  Sex: Female

DRUGS (1)
  1. ACLASTA [Suspect]
     Active Substance: ZOLEDRONIC ACID
     Indication: OSTEOPOROSIS
     Dosage: 5 MG, Q12MO
     Route: 042
     Dates: start: 20130614

REACTIONS (4)
  - Gait disturbance [Unknown]
  - Limb discomfort [Unknown]
  - Fall [Unknown]
  - Femur fracture [Unknown]

NARRATIVE: CASE EVENT DATE: 201602
